FAERS Safety Report 18681946 (Version 2)
Quarter: 2020Q4

REPORT INFORMATION
  Report Type: Report from Study
  Country: BR (occurrence: BR)
  Receive Date: 20201229
  Receipt Date: 20201231
  Transmission Date: 20210114
  Serious: Yes (Other)
  Sender: FDA-Public Use
  Company Number: BR-JNJFOC-20201243964

PATIENT
  Age: 26 Year
  Sex: Female
  Weight: 53 kg

DRUGS (2)
  1. STELARA [Suspect]
     Active Substance: USTEKINUMAB
  2. STELARA [Suspect]
     Active Substance: USTEKINUMAB
     Indication: PSORIASIS
     Dosage: ON WEEKS 0 AND 4 (2 DOSES)
     Route: 058
     Dates: end: 2019

REACTIONS (3)
  - Infection [Unknown]
  - Psoriatic arthropathy [Unknown]
  - Psoriasis [Unknown]
